FAERS Safety Report 25722147 (Version 1)
Quarter: 2025Q3

REPORT INFORMATION
  Report Type: Spontaneous
  Country: EU (occurrence: EU)
  Receive Date: 20250825
  Receipt Date: 20250825
  Transmission Date: 20251020
  Serious: Yes (Hospitalization)
  Sender: MERCK SHARP & DOHME LLC
  Company Number: None

PATIENT
  Age: 68 Year
  Sex: Male

DRUGS (5)
  1. KEYTRUDA [Suspect]
     Active Substance: PEMBROLIZUMAB
     Indication: Malignant melanoma
     Dosage: STRENGTH: 25 MG/ML?DOSAGE: 200 MG EVERY 3 WEEKS
     Route: 042
     Dates: start: 20250123, end: 20250530
  2. ATORVASTATIN [Concomitant]
     Active Substance: ATORVASTATIN
     Dosage: 1 TABLET IN THE EVENING
     Route: 048
  3. ALLOPURINOL [Concomitant]
     Active Substance: ALLOPURINOL
     Dosage: 1 TABLET IN THE EVENING
     Route: 048
  4. Byol 2,5 MG [Concomitant]
     Dosage: 1 TABLET IN THE MORNING
     Route: 048
  5. Lercapress 10 MG [Concomitant]
     Dosage: 2X1 TABLET
     Route: 048

REACTIONS (2)
  - Encephalopathy [Recovered/Resolved]
  - Secondary adrenocortical insufficiency [Recovered/Resolved]

NARRATIVE: CASE EVENT DATE: 20250616
